FAERS Safety Report 23184177 (Version 2)
Quarter: 2024Q1

REPORT INFORMATION
  Report Type: Spontaneous
  Country: US (occurrence: None)
  Receive Date: 20231115
  Receipt Date: 20240109
  Transmission Date: 20240410
  Serious: No
  Sender: FDA-Public Use
  Company Number: 2023A253564

PATIENT
  Age: 24778 Day

DRUGS (1)
  1. BYDUREON BCISE [Suspect]
     Active Substance: EXENATIDE
     Indication: Type 2 diabetes mellitus
     Route: 058

REACTIONS (3)
  - Herpes zoster [Not Recovered/Not Resolved]
  - Product dose omission issue [Unknown]
  - Needle issue [Unknown]

NARRATIVE: CASE EVENT DATE: 20231106
